FAERS Safety Report 5129112-4 (Version None)
Quarter: 2006Q4

REPORT INFORMATION
  Report Type: 
  Country: None (occurrence: None)
  Receive Date: 20061011
  Receipt Date: 20060922
  Transmission Date: 20070319
  Serious: Yes (Hospitalization, Other)
  Sender: FDA-Public Use
  Company Number: CA200606005653

PATIENT
  Age: 55 Year
  Sex: Male

DRUGS (6)
  1. FORTEO [Suspect]
     Indication: OSTEOPOROSIS
     Dosage: 20 UG, DAILY (1/D)
     Dates: start: 20050919
  2. FORTEO [Concomitant]
  3. NEXIUM [Concomitant]
  4. CALCIUM (CALCIUM) [Concomitant]
  5. VITAMIN D [Concomitant]
  6. DOMPERIDONE (DOMPERIDONE) [Concomitant]

REACTIONS (1)
  - PROSTATE CANCER [None]
